FAERS Safety Report 5065765-7 (Version None)
Quarter: 2006Q3

REPORT INFORMATION
  Report Type: 
  Country: None (occurrence: None)
  Receive Date: 20060731
  Receipt Date: 20060721
  Transmission Date: 20061208
  Serious: Yes (Hospitalization)
  Sender: FDA-Public Use
  Company Number: FR-ROCHE-456665

PATIENT
  Age: 81 Year
  Sex: Female
  Weight: 78 kg

DRUGS (5)
  1. ROCEPHIN [Suspect]
     Indication: LOCALISED INFECTION
     Route: 030
     Dates: start: 20060521, end: 20060610
  2. ROCEPHIN [Suspect]
     Route: 030
     Dates: start: 20060613, end: 20060615
  3. SPECIAFOLDINE [Concomitant]
     Route: 048
     Dates: end: 20060616
  4. OPATANOL [Concomitant]
     Dosage: ROUTE REPORTED AS: LOCAL.
     Route: 050
     Dates: start: 20060528, end: 20060607
  5. OFLOCET [Concomitant]
     Indication: LOCALISED INFECTION
     Route: 048
     Dates: start: 20060525, end: 20060613

REACTIONS (8)
  - CONJUNCTIVITIS ALLERGIC [None]
  - ERYTHEMA [None]
  - INJECTION SITE PRURITUS [None]
  - INJECTION SITE REACTION [None]
  - PRURITUS [None]
  - RASH PUSTULAR [None]
  - SKIN EXFOLIATION [None]
  - TOXIC SKIN ERUPTION [None]
